FAERS Safety Report 7166634-9 (Version None)
Quarter: 2010Q4

REPORT INFORMATION
  Report Type: 
  Country: None (occurrence: None)
  Receive Date: 20101216
  Receipt Date: 20101207
  Transmission Date: 20110411
  Serious: Yes (Hospitalization)
  Sender: FDA-Public Use
  Company Number: CN-PFIZER INC-2010165376

PATIENT
  Age: 60 Year
  Sex: Female

DRUGS (3)
  1. METHYLPREDNISOLONE [Suspect]
     Indication: SYSTEMIC LUPUS ERYTHEMATOSUS
     Dosage: 40 MG, 1X/DAY
     Route: 048
     Dates: start: 20100101, end: 20100101
  2. METHYLPREDNISOLONE [Suspect]
     Dosage: 24 MG, 1X/DAY
     Route: 048
     Dates: start: 20100312, end: 20100101
  3. MYCOPHENOLATE MOFETIL [Suspect]
     Indication: SYSTEMIC LUPUS ERYTHEMATOSUS
     Dosage: 0.75 G, 2X/DAY
     Route: 048
     Dates: start: 20100226, end: 20100401

REACTIONS (1)
  - PNEUMOCYSTIS JIROVECI PNEUMONIA [None]
